FAERS Safety Report 22303449 (Version 1)
Quarter: 2023Q2

REPORT INFORMATION
  Report Type: Spontaneous
  Country: US (occurrence: None)
  Receive Date: 20230510
  Receipt Date: 20230510
  Transmission Date: 20230722
  Serious: Yes (Hospitalization)
  Sender: FDA-Public Use
  Company Number: 2023A103631

PATIENT

DRUGS (1)
  1. PULMICORT TURBUHALER [Suspect]
     Active Substance: BUDESONIDE
     Indication: Asthma
     Route: 055

REACTIONS (6)
  - Transient ischaemic attack [Unknown]
  - Amnesia [Unknown]
  - Migraine [Unknown]
  - Illness [Unknown]
  - Dysphonia [Unknown]
  - Aphonia [Unknown]
